FAERS Safety Report 21417878 (Version 2)
Quarter: 2022Q4

REPORT INFORMATION
  Report Type: Spontaneous
  Country: JP (occurrence: JP)
  Receive Date: 20221006
  Receipt Date: 20221007
  Transmission Date: 20230113
  Serious: Yes (Other)
  Sender: FDA-Public Use
  Company Number: JP-JNJFOC-20221008807

PATIENT
  Age: 79 Year
  Sex: Male

DRUGS (1)
  1. MINOXIDIL [Suspect]
     Active Substance: MINOXIDIL
     Indication: Androgenetic alopecia
     Route: 061

REACTIONS (2)
  - Prostate cancer stage IV [Recovering/Resolving]
  - Prostatic operation [Unknown]

NARRATIVE: CASE EVENT DATE: 20220301
